FAERS Safety Report 5094086-1 (Version None)
Quarter: 2006Q3

REPORT INFORMATION
  Report Type: 
  Country: None (occurrence: None)
  Receive Date: 20060831
  Receipt Date: 20060823
  Transmission Date: 20061208
  Serious: Yes (Other)
  Sender: FDA-Public Use
  Company Number: FR-ROCHE-460641

PATIENT
  Age: 44 Year
  Sex: Male

DRUGS (4)
  1. ZENAPAX [Suspect]
     Route: 042
  2. MYCOPHENOLATE MOFETIL [Suspect]
     Route: 065
  3. TACROLIMUS [Suspect]
     Route: 065
  4. CORTICOSTEROIDS [Suspect]
     Route: 065

REACTIONS (2)
  - HERPES VIRUS INFECTION [None]
  - KAPOSI'S SARCOMA [None]
